FAERS Safety Report 4715237-1 (Version None)
Quarter: 2005Q3

REPORT INFORMATION
  Report Type: 
  Country: None (occurrence: None)
  Receive Date: 20050715
  Receipt Date: 20050413
  Transmission Date: 20060218
  Serious: Yes (Death, Other)
  Sender: FDA-Public Use
  Company Number: US-MERCK-0504USA02043

PATIENT
  Age: 80 Year
  Sex: Female
  Weight: 91 kg

DRUGS (15)
  1. VIOXX [Suspect]
     Indication: ARTHRITIS
     Route: 048
     Dates: start: 20020401, end: 20030422
  2. WARFARIN [Concomitant]
     Route: 048
     Dates: start: 20020901, end: 20030401
  3. ISOSORBIDE [Concomitant]
     Route: 048
     Dates: start: 20020101, end: 20030401
  4. ACCUPRIL [Concomitant]
     Route: 048
     Dates: start: 20020801, end: 20030401
  5. PREVACID [Concomitant]
     Route: 065
  6. DIGOXIN [Concomitant]
     Route: 048
     Dates: start: 20021001, end: 20030401
  7. ZOCOR [Concomitant]
     Route: 048
     Dates: start: 20000401, end: 20030101
  8. FUROSEMIDE [Concomitant]
     Route: 048
     Dates: start: 20020101, end: 20021101
  9. VITAMINS (UNSPECIFIED) [Concomitant]
     Route: 048
     Dates: start: 20021001, end: 20030201
  10. CAPTOPRIL [Concomitant]
     Route: 048
     Dates: start: 19991101, end: 20020801
  11. SENOKOT [Concomitant]
     Route: 048
     Dates: start: 20010101, end: 20020901
  12. FAMOTIDINE [Concomitant]
     Route: 048
     Dates: start: 20010801, end: 20021101
  13. ACETAMINOPHEN [Concomitant]
     Route: 048
     Dates: start: 20000401, end: 20030101
  14. ASPIRIN [Concomitant]
     Route: 048
     Dates: start: 20010901, end: 20020401
  15. DOCUSATE SODIUM [Concomitant]
     Route: 048
     Dates: start: 20000501, end: 20030401

REACTIONS (5)
  - ARTERIOSCLEROSIS [None]
  - CARDIAC DISORDER [None]
  - CEREBROVASCULAR ACCIDENT [None]
  - HYPERTENSIVE HEART DISEASE [None]
  - MYOCARDIAL INFARCTION [None]
